FAERS Safety Report 7945062-X (Version None)
Quarter: 2011Q4

REPORT INFORMATION
  Report Type: 
  Country: None (occurrence: None)
  Receive Date: 20111129
  Receipt Date: 20111124
  Transmission Date: 20120403
  Serious: Yes (Other)
  Sender: FDA-Public Use
  Company Number: JP-PFIZER INC-2011269668

PATIENT
  Age: 70 Year
  Sex: Female

DRUGS (2)
  1. LYRICA [Suspect]
     Indication: PROCEDURAL PAIN
     Dosage: 25 MG/DAY
     Route: 048
     Dates: start: 20110811
  2. LORAZEPAM [Suspect]
     Indication: DEPRESSION
     Dosage: 0.5 MG/DAY
     Route: 048

REACTIONS (2)
  - FALL [None]
  - HEAD INJURY [None]
